FAERS Safety Report 26138768 (Version 1)
Quarter: 2025Q4

REPORT INFORMATION
  Report Type: Spontaneous
  Country: US (occurrence: US)
  Receive Date: 20251210
  Receipt Date: 20251210
  Transmission Date: 20260118
  Serious: Yes (Other)
  Sender: ALEXION PHARMACEUTICALS
  Company Number: US-AstraZeneca-CH-01007062A

PATIENT
  Sex: Female

DRUGS (1)
  1. TAGRISSO [Suspect]
     Active Substance: OSIMERTINIB
     Indication: Non-small cell lung cancer
     Dosage: UNK

REACTIONS (7)
  - Neuropathy peripheral [Unknown]
  - Oral pain [Unknown]
  - Dry skin [Unknown]
  - Ingrowing nail [Unknown]
  - Hypersomnia [Unknown]
  - Fatigue [Unknown]
  - Skin disorder [Unknown]
